FAERS Safety Report 7435186-8 (Version None)
Quarter: 2011Q2

REPORT INFORMATION
  Report Type: 
  Country: None (occurrence: None)
  Receive Date: 20110425
  Receipt Date: 20110419
  Transmission Date: 20111010
  Serious: Yes (Death, Hospitalization)
  Sender: FDA-Public Use
  Company Number: PHHY2011JP27298

PATIENT
  Sex: Male

DRUGS (6)
  1. ALFAROL [Concomitant]
     Dosage: 0.25 UG, UNK
     Route: 048
     Dates: start: 20021101
  2. GASTER D [Concomitant]
     Dosage: 20 MG, UNK
     Route: 048
     Dates: start: 20021101
  3. DIOVAN [Suspect]
     Indication: HYPERTENSION
     Dosage: 40 MG, QD
     Route: 048
     Dates: start: 20081110
  4. DIOVAN [Suspect]
     Dosage: 80 MG, QD
     Route: 048
     Dates: start: 20091006
  5. PREDONINE [Concomitant]
     Dosage: 10 MG, UNK
     Route: 048
     Dates: start: 20021101
  6. HUMALOG [Concomitant]
     Dosage: 34 IU, UNK
     Route: 058
     Dates: start: 20060301

REACTIONS (2)
  - CEREBRAL HAEMORRHAGE [None]
  - CARDIO-RESPIRATORY ARREST [None]
